FAERS Safety Report 5285129-0 (Version None)
Quarter: 2007Q2

REPORT INFORMATION
  Report Type: 
  Country: None (occurrence: None)
  Receive Date: 20070403
  Receipt Date: 20070322
  Transmission Date: 20071010
  Serious: Yes (Hospitalization)
  Sender: FDA-Public Use
  Company Number: NL-PFIZER INC-2006107589

PATIENT
  Sex: Female

DRUGS (9)
  1. SU-011,248 [Suspect]
     Indication: METASTATIC RENAL CELL CARCINOMA
     Route: 048
  2. RISEDRONATE SODIUM [Concomitant]
     Route: 048
  3. ACETYLCYSTEINE [Concomitant]
     Route: 048
     Dates: start: 20060301, end: 20060818
  4. OXAZEPAM [Concomitant]
     Route: 048
     Dates: start: 19910101, end: 20060818
  5. METOPROLOL SUCCINATE [Concomitant]
     Route: 048
     Dates: start: 20060301
  6. GABAPENTIN [Concomitant]
     Route: 048
     Dates: start: 20020101
  7. FUROSEMIDE [Concomitant]
     Route: 048
     Dates: start: 20060301, end: 20060818
  8. PANTOPRAZOLE [Concomitant]
     Route: 048
     Dates: start: 20060301
  9. OXYCONTIN [Concomitant]
     Route: 048
     Dates: start: 20060814, end: 20060818

REACTIONS (2)
  - COGNITIVE DISORDER [None]
  - GAIT DISTURBANCE [None]
